FAERS Safety Report 11733735 (Version 1)
Quarter: 2015Q4

REPORT INFORMATION
  Report Type: Spontaneous
  Country: IT (occurrence: IT)
  Receive Date: 20151113
  Receipt Date: 20151113
  Transmission Date: 20160304
  Serious: Yes (Hospitalization)
  Sender: FDA-Public Use
  Company Number: IT-ABBVIE-15K-083-1496488-00

PATIENT
  Age: 75 Year
  Sex: Female

DRUGS (1)
  1. HUMIRA [Suspect]
     Active Substance: ADALIMUMAB
     Indication: PSORIASIS
     Route: 058
     Dates: start: 20130408, end: 20151017

REACTIONS (8)
  - Pleural effusion [Unknown]
  - Pustular psoriasis [Recovering/Resolving]
  - White blood cell count increased [Unknown]
  - Neutrophil count increased [Unknown]
  - Erythrodermic psoriasis [Recovering/Resolving]
  - Skin infection [Unknown]
  - Skin lesion [Unknown]
  - Psoriasis [Unknown]

NARRATIVE: CASE EVENT DATE: 201509
